FAERS Safety Report 20612553 (Version 2)
Quarter: 2022Q2

REPORT INFORMATION
  Report Type: Spontaneous
  Country: EG (occurrence: EG)
  Receive Date: 20220318
  Receipt Date: 20220403
  Transmission Date: 20220721
  Serious: No
  Sender: FDA-Public Use
  Company Number: EG-ELI_LILLY_AND_COMPANY-EG202203005806

PATIENT
  Age: 60 Year
  Sex: Female
  Weight: 85 kg

DRUGS (7)
  1. OLUMIANT [Suspect]
     Active Substance: BARICITINIB
     Indication: Cytokine storm
     Dosage: 4 MG, DAILY
     Route: 048
     Dates: start: 20220212, end: 20220225
  2. ENOXAPARIN SODIUM [Suspect]
     Active Substance: ENOXAPARIN SODIUM
     Indication: Pulmonary embolism
     Dosage: 80 MG, BID
     Route: 058
     Dates: start: 202202
  3. ENOXAPARIN SODIUM [Suspect]
     Active Substance: ENOXAPARIN SODIUM
     Indication: Oxygen saturation decreased
  4. REMDESIVIR [Concomitant]
     Active Substance: REMDESIVIR
     Indication: COVID-19
     Dosage: 200 MG, SINGLE
     Route: 042
     Dates: start: 202202
  5. REMDESIVIR [Concomitant]
     Active Substance: REMDESIVIR
     Dosage: 100 MG, DAILY
     Route: 042
  6. COLCHICINE [Concomitant]
     Active Substance: COLCHICINE
     Indication: COVID-19
     Dosage: UNK UNK, UNKNOWN
     Route: 048
     Dates: end: 20220214
  7. LEVOFLOXACIN [Concomitant]
     Active Substance: LEVOFLOXACIN
     Indication: COVID-19 pneumonia
     Dosage: UNK, UNKNOWN
     Route: 042
     Dates: start: 202202

REACTIONS (4)
  - Diarrhoea [Not Recovered/Not Resolved]
  - Rectal discharge [Unknown]
  - Melaena [Recovered/Resolved]
  - Off label use [Unknown]

NARRATIVE: CASE EVENT DATE: 20220213
